FAERS Safety Report 5034952-6 (Version None)
Quarter: 2006Q2

REPORT INFORMATION
  Report Type: 
  Country: None (occurrence: None)
  Receive Date: 20060519
  Receipt Date: 20060329
  Transmission Date: 20061013
  Serious: No
  Sender: FDA-Public Use
  Company Number: TPA2006A00572

PATIENT
  Age: 49 Year
  Sex: Female
  Weight: 48.9885 kg

DRUGS (6)
  1. ROZEREM [Suspect]
     Indication: INSOMNIA
     Dosage: 8 MG, HS, PER ORAL
     Route: 048
     Dates: start: 20060324, end: 20060325
  2. VALIUM (DIAZEPAM) (5 MILLIGRAM, TABLETS) [Concomitant]
  3. LORTAB (PARACETAMOL, HYDROCODONE BITARTRATE) (10 MILLIGRAM) [Concomitant]
  4. AMITRIPTYLINE (AMITRIPTYLINE) (25 MILLIGRAM) [Concomitant]
  5. ALBUTEROL INHALER (SALBUTAMOL) [Concomitant]
  6. MAXALT (RIZATRIPTAN BENZOATE) (10 MILLIGRAM) [Concomitant]

REACTIONS (1)
  - HEART RATE INCREASED [None]
